FAERS Safety Report 5599693-5 (Version None)
Quarter: 2008Q1

REPORT INFORMATION
  Report Type: 
  Country: None (occurrence: None)
  Receive Date: 20080118
  Receipt Date: 20080118
  Transmission Date: 20080703
  Serious: Yes (Hospitalization)
  Sender: FDA-Public Use
  Company Number: None

PATIENT
  Age: 18 Year
  Sex: Female

DRUGS (6)
  1. ACETAMINOPHEN [Suspect]
  2. CITALOPRAM HYDROBROMIDE [Suspect]
     Indication: DEPRESSION
     Dosage: 10 MG QD
  3. LANTUS [Concomitant]
  4. TOPIRAMATE [Concomitant]
  5. CITALOPRAM HYDROBROMIDE [Concomitant]
  6. LAMICTAL [Concomitant]

REACTIONS (5)
  - BLOOD POTASSIUM DECREASED [None]
  - DEPRESSED LEVEL OF CONSCIOUSNESS [None]
  - DRUG SCREEN POSITIVE [None]
  - ELECTROCARDIOGRAM QT PROLONGED [None]
  - VOMITING [None]
